FAERS Safety Report 8873833 (Version 6)
Quarter: 2014Q4

REPORT INFORMATION
  Report Type: Spontaneous
  Country: US (occurrence: US)
  Receive Date: 20121023
  Receipt Date: 20141013
  Transmission Date: 20150529
  Serious: Yes (Life-Threatening, Hospitalization, Other)
  Sender: FDA-Public Use
  Company Number: US-ASTELLAS-2012US003580

PATIENT
  Age: 58 Year
  Sex: Male
  Weight: 58 kg

DRUGS (7)
  1. ASPIRIN. [Concomitant]
     Active Substance: ASPIRIN
     Indication: PRODUCT USED FOR UNKNOWN INDICATION
     Route: 048
  2. NITROSTAT [Concomitant]
     Active Substance: NITROGLYCERIN
     Indication: PAIN
     Dosage: 0.4 MG, AS NEEDED
     Route: 060
  3. MYOVIEW [Concomitant]
     Active Substance: TECHNETIUM TC-99M TETROFOSMIN\TETROFOSMIN
     Dosage: 29.3 MCI, TOTAL DOSE
     Route: 042
     Dates: start: 20130314, end: 20130314
  4. MYOVIEW [Concomitant]
     Active Substance: TECHNETIUM TC-99M TETROFOSMIN\TETROFOSMIN
     Indication: SCAN MYOCARDIAL PERFUSION
     Dosage: 9.60 MCI, TOTAL DOSE
     Route: 042
     Dates: start: 20130314, end: 20130314
  5. PRAVASTATIN SODIUM. [Concomitant]
     Active Substance: PRAVASTATIN SODIUM
     Indication: BLOOD CHOLESTEROL INCREASED
     Route: 048
  6. LEXISCAN [Suspect]
     Active Substance: REGADENOSON
     Indication: SCAN MYOCARDIAL PERFUSION
     Route: 065
     Dates: start: 20120314, end: 20120314
  7. MOTRIN [Concomitant]
     Active Substance: IBUPROFEN
     Indication: PRODUCT USED FOR UNKNOWN INDICATION
     Route: 048
     Dates: end: 20120403

REACTIONS (7)
  - Off label use [Unknown]
  - Acute myocardial infarction [Unknown]
  - Cardiac output decreased [Unknown]
  - Ventricular arrhythmia [Unknown]
  - Hepatic enzyme increased [Unknown]
  - General physical health deterioration [Unknown]
  - Cardiac arrest [Unknown]

NARRATIVE: CASE EVENT DATE: 20120314
